FAERS Safety Report 8113354-X (Version None)
Quarter: 2012Q1

REPORT INFORMATION
  Report Type: 
  Country: None (occurrence: None)
  Receive Date: 20120203
  Receipt Date: 20120123
  Transmission Date: 20120608
  Serious: Yes (Hospitalization)
  Sender: FDA-Public Use
  Company Number: FR-VERTEX PHARMACEUTICALS INC.-000000000000000134

PATIENT
  Age: 61 Year
  Sex: Female

DRUGS (3)
  1. TELAPREVIR [Suspect]
     Indication: HEPATITIS C
     Dosage: DOSAGE FORM: TABLET
  2. RIBAVIRINE [Concomitant]
     Indication: HEPATITIS C
  3. INTERFERON ALFA [Concomitant]
     Indication: HEPATITIS C

REACTIONS (3)
  - RASH ERYTHEMATOUS [None]
  - ANAEMIA [None]
  - PYREXIA [None]
